FAERS Safety Report 5417966-3 (Version None)
Quarter: 2007Q3

REPORT INFORMATION
  Report Type: 
  Country: None (occurrence: None)
  Receive Date: 20070817
  Receipt Date: 20070808
  Transmission Date: 20080115
  Serious: Yes (Hospitalization, Other)
  Sender: FDA-Public Use
  Company Number: AU-NOVOPROD-266330

PATIENT
  Age: 3 Month
  Sex: Female
  Weight: 5.2 kg

DRUGS (4)
  1. NORDITROPIN [Suspect]
     Indication: BODY HEIGHT BELOW NORMAL
     Dosage: .12 MG, QD
     Route: 058
     Dates: start: 20070504
  2. HYDROCORTISONE [Concomitant]
     Dosage: 3 MG, QD
     Route: 048
     Dates: start: 20070501
  3. LEVOTHYROXINE SODIUM [Concomitant]
     Dosage: 37.5 UG, QD
     Route: 048
     Dates: start: 20070503
  4. HYDROCHLOROTHIAZIDE [Concomitant]
     Dosage: 15 MG, QD
     Route: 048
     Dates: start: 20070530

REACTIONS (4)
  - ADRENOCORTICAL INSUFFICIENCY ACUTE [None]
  - COUGH [None]
  - GASTROENTERITIS [None]
  - RHINORRHOEA [None]
